FAERS Safety Report 15201897 (Version 1)
Quarter: 2018Q3

REPORT INFORMATION
  Report Type: Spontaneous
  Country: US (occurrence: US)
  Receive Date: 20180627
  Receipt Date: 20180627
  Transmission Date: 20181010
  Serious: Yes (Disabling, Other)
  Sender: FDA-Public Use
  Company Number: None

PATIENT
  Age: 85 Year
  Sex: Female
  Weight: 69.4 kg

DRUGS (8)
  1. POTASSIUM CITRATE. [Concomitant]
     Active Substance: POTASSIUM CITRATE
  2. VITAMIN D [Concomitant]
     Active Substance: CHOLECALCIFEROL
  3. ZETIA [Concomitant]
     Active Substance: EZETIMIBE
  4. LOSARTIN [Concomitant]
     Active Substance: LOSARTAN
  5. ZOFRAN [Suspect]
     Active Substance: ONDANSETRON HYDROCHLORIDE
     Indication: NAUSEA
     Dosage: ?          QUANTITY:1 DF DOSAGE FORM;?
     Route: 048
     Dates: start: 20180526, end: 20180527
  6. CARVEDILOL. [Concomitant]
     Active Substance: CARVEDILOL
  7. FOLIC ACID. [Concomitant]
     Active Substance: FOLIC ACID
  8. ALL B VITAMINS [Concomitant]

REACTIONS (7)
  - Dysstasia [None]
  - Nightmare [None]
  - Muscular weakness [None]
  - Memory impairment [None]
  - Walking aid user [None]
  - Confusional state [None]
  - Bradyphrenia [None]

NARRATIVE: CASE EVENT DATE: 20180527
